FAERS Safety Report 13294441 (Version 1)
Quarter: 2017Q1

REPORT INFORMATION
  Report Type: Spontaneous
  Country: US (occurrence: US)
  Receive Date: 20170303
  Receipt Date: 20170303
  Transmission Date: 20170428
  Serious: Yes (Other)
  Sender: FDA-Public Use
  Company Number: US-SA-2017SA034061

PATIENT
  Sex: Male

DRUGS (4)
  1. SOLOSTAR [Concomitant]
     Active Substance: DEVICE
     Indication: DIABETES MELLITUS
     Route: 065
     Dates: start: 2015
  2. TOUJEO [Suspect]
     Active Substance: INSULIN GLARGINE
     Indication: DIABETES MELLITUS
     Dosage: DOSE:DOSE IS 30-35 UNITS DAILY
     Route: 065
     Dates: start: 2015
  3. SOLOSTAR [Concomitant]
     Active Substance: DEVICE
     Indication: DIABETES MELLITUS
  4. TOUJEO [Suspect]
     Active Substance: INSULIN GLARGINE
     Indication: DIABETES MELLITUS
     Dosage: DOSE 20 UNIT EXTRA?130 UNITS?40 UNITS
     Route: 065

REACTIONS (5)
  - Blood glucose decreased [Unknown]
  - Fall [Unknown]
  - Blood glucose increased [Unknown]
  - Muscle haemorrhage [Unknown]
  - Hip fracture [Unknown]

NARRATIVE: CASE EVENT DATE: 20161231
